FAERS Safety Report 22084131 (Version 8)
Quarter: 2023Q2

REPORT INFORMATION
  Report Type: Spontaneous
  Country: US (occurrence: US)
  Receive Date: 20230310
  Receipt Date: 20230612
  Transmission Date: 20230722
  Serious: Yes (Hospitalization, Other)
  Sender: FDA-Public Use
  Company Number: US-UNITED THERAPEUTICS-UNT-2023-006677

PATIENT
  Age: 71 Year
  Sex: Female
  Weight: 86.621 kg

DRUGS (9)
  1. TYVASO DPI [Suspect]
     Active Substance: TREPROSTINIL
     Indication: Pulmonary arterial hypertension
     Dosage: 32 ?G, QID
  2. TYVASO DPI [Suspect]
     Active Substance: TREPROSTINIL
     Dosage: UNK
     Dates: start: 20230118
  3. TYVASO DPI [Suspect]
     Active Substance: TREPROSTINIL
     Indication: Pulmonary arterial hypertension
     Dosage: UNK
  4. TYVASO DPI [Suspect]
     Active Substance: TREPROSTINIL
     Dosage: UNK
  5. TYVASO [Suspect]
     Active Substance: TREPROSTINIL
     Indication: Pulmonary arterial hypertension
     Dosage: 18 ?G, QID
  6. TYVASO [Suspect]
     Active Substance: TREPROSTINIL
     Dosage: 36 ?G, QID
  7. TYVASO [Suspect]
     Active Substance: TREPROSTINIL
     Dosage: UNK
     Dates: start: 20230315
  8. TRACLEER [Concomitant]
     Active Substance: BOSENTAN
     Indication: Product used for unknown indication
     Dosage: UNK
     Route: 065
  9. ELIQUIS [Concomitant]
     Active Substance: APIXABAN
     Indication: Product used for unknown indication
     Dosage: UNK
     Route: 065

REACTIONS (9)
  - Wound infection [Unknown]
  - Limb discomfort [Unknown]
  - Scleroderma [Unknown]
  - Gastroenteritis viral [Unknown]
  - Hernia [Unknown]
  - Dyspnoea [Not Recovered/Not Resolved]
  - Limb injury [Unknown]
  - Malaise [Unknown]
  - Therapy interrupted [Recovered/Resolved]

NARRATIVE: CASE EVENT DATE: 20230301
